FAERS Safety Report 22138829 (Version 1)
Quarter: 2023Q1

REPORT INFORMATION
  Report Type: Spontaneous
  Country: US (occurrence: US)
  Receive Date: 20230327
  Receipt Date: 20230327
  Transmission Date: 20230418
  Serious: Yes (Hospitalization)
  Sender: FDA-Public Use
  Company Number: US-CELLTRION INC.-2023US006194

PATIENT

DRUGS (7)
  1. INFLECTRA [Suspect]
     Active Substance: INFLIXIMAB-DYYB
     Indication: Product used for unknown indication
     Dosage: EVERY 8 WEEKS BY INFUSION
  2. REMICADE [Suspect]
     Active Substance: INFLIXIMAB
     Indication: Product used for unknown indication
     Dosage: EVERY 8 WEEKS BY INFUSION
  3. PREDNISONE [Suspect]
     Active Substance: PREDNISONE
     Indication: Product used for unknown indication
     Dosage: 1000 MG IV PREDNISONE (4X A DAY AT 250 MG)
     Route: 042
  4. PREDNISONE [Suspect]
     Active Substance: PREDNISONE
     Dosage: 1000 MG IV PREDNISONE (2X A DAY AT 500 MG)
     Route: 042
  5. METHOTREXATE [Suspect]
     Active Substance: METHOTREXATE
     Indication: Product used for unknown indication
     Dosage: 1X PER WEEK
  6. INSULIN NOS [Concomitant]
     Active Substance: INSULIN NOS
     Indication: Blood glucose increased
     Dosage: 10/15U AT EACH MEAL
  7. INSULIN NOS [Concomitant]
     Active Substance: INSULIN NOS
     Dosage: 20/25U OF SLOW ACTING AT 9AM/9PM

REACTIONS (2)
  - Blood glucose increased [Unknown]
  - Drug ineffective [Unknown]
